FAERS Safety Report 19955052 (Version 1)
Quarter: 2021Q4

REPORT INFORMATION
  Report Type: Report from Study
  Country: US (occurrence: US)
  Receive Date: 20211013
  Receipt Date: 20211013
  Transmission Date: 20220303
  Serious: Yes (Other)
  Sender: FDA-Public Use
  Company Number: 2021A704338

PATIENT
  Age: 26935 Day
  Sex: Female
  Weight: 71.5 kg

DRUGS (8)
  1. LYNPARZA [Interacting]
     Active Substance: OLAPARIB
     Indication: Ovarian cancer
     Route: 048
     Dates: start: 20210820, end: 20210924
  2. LYNPARZA [Interacting]
     Active Substance: OLAPARIB
     Indication: Ovarian cancer
     Route: 048
  3. DILTIAZEM [Interacting]
     Active Substance: DILTIAZEM
     Route: 065
  4. DICLOFENAC SODIUM [Concomitant]
     Active Substance: DICLOFENAC SODIUM
  5. MAGNESIUM [Concomitant]
     Active Substance: MAGNESIUM
  6. PRILOSEC OTC [Concomitant]
     Active Substance: OMEPRAZOLE MAGNESIUM
  7. VITAMIN D3 [Concomitant]
     Active Substance: CHOLECALCIFEROL
  8. ZYRTEC [Concomitant]
     Active Substance: CETIRIZINE HYDROCHLORIDE

REACTIONS (10)
  - Drug interaction [Unknown]
  - Nausea [Unknown]
  - Vomiting [Unknown]
  - Diarrhoea [Not Recovered/Not Resolved]
  - Pericardial effusion [Unknown]
  - Myalgia [Unknown]
  - Atrial fibrillation [Unknown]
  - Chest pain [Unknown]
  - Back pain [Unknown]
  - Myalgia [Unknown]

NARRATIVE: CASE EVENT DATE: 20210915
